FAERS Safety Report 10128838 (Version 1)
Quarter: 2014Q2

REPORT INFORMATION
  Report Type: Spontaneous
  Country: US (occurrence: None)
  Receive Date: 20140424
  Receipt Date: 20140424
  Transmission Date: 20141212
  Serious: Yes (Hospitalization)
  Sender: FDA-Public Use
  Company Number: None

PATIENT
  Age: 11 Year
  Sex: Female

DRUGS (1)
  1. SPRYCEL [Suspect]
     Indication: MYELOID LEUKAEMIA
     Route: 048

REACTIONS (1)
  - Viral infection [None]
